FAERS Safety Report 24321097 (Version 1)
Quarter: 2024Q3

REPORT INFORMATION
  Report Type: Spontaneous
  Country: CN (occurrence: None)
  Receive Date: 20240916
  Receipt Date: 20240916
  Transmission Date: 20241016
  Serious: Yes (Hospitalization, Other)
  Sender: Alvotech
  Company Number: CN-ALVOTECHPMS-2024-ALVOTECHPMS-002288

PATIENT
  Age: 42 Year
  Sex: Male

DRUGS (3)
  1. USTEKINUMAB [Suspect]
     Active Substance: USTEKINUMAB
     Indication: Crohn^s disease
     Route: 042
     Dates: start: 20210316
  2. USTEKINUMAB [Suspect]
     Active Substance: USTEKINUMAB
     Indication: Crohn^s disease
     Dosage: SECOND TO EIGHTH DOSES
     Route: 058
     Dates: start: 202105, end: 202207
  3. USTEKINUMAB [Suspect]
     Active Substance: USTEKINUMAB
     Indication: Crohn^s disease
     Route: 042
     Dates: end: 20221026

REACTIONS (2)
  - Renal impairment [Recovered/Resolved]
  - Treatment failure [Unknown]
